FAERS Safety Report 20330282 (Version 1)
Quarter: 2022Q1

REPORT INFORMATION
  Report Type: Report from Study
  Country: TR (occurrence: TR)
  Receive Date: 20220113
  Receipt Date: 20220113
  Transmission Date: 20220423
  Serious: Yes (Other)
  Sender: FDA-Public Use
  Company Number: TR-SUN PHARMACEUTICAL INDUSTRIES LTD-2021R1-323018

PATIENT
  Age: 13 Year
  Sex: Female

DRUGS (1)
  1. ACETAZOLAMIDE [Suspect]
     Active Substance: ACETAZOLAMIDE
     Indication: Visual impairment
     Dosage: 20-30 MG/KG/DAY, MAXIMUM DOSE 1.5-2 G/DAY
     Route: 065

REACTIONS (1)
  - Condition aggravated [Unknown]
